FAERS Safety Report 13384298 (Version 1)
Quarter: 2017Q1

REPORT INFORMATION
  Report Type: Spontaneous
  Country: US (occurrence: US)
  Receive Date: 20170329
  Receipt Date: 20170329
  Transmission Date: 20170429
  Serious: Yes (Other)
  Sender: FDA-Public Use
  Company Number: US-TEVA-752739USA

PATIENT
  Age: 75 Year
  Sex: Female
  Weight: 120.31 kg

DRUGS (9)
  1. ANASTROZOLE. [Concomitant]
     Active Substance: ANASTROZOLE
     Dosage: 1 DAILY
  2. FENOFIBRATE. [Concomitant]
     Active Substance: FENOFIBRATE
     Dosage: 1 DAILY
  3. CENTRUM SILVER [Concomitant]
     Active Substance: MINERALS\VITAMINS
     Dosage: 1 DAILY
  4. POTASSIUM CHLORIDE. [Concomitant]
     Active Substance: POTASSIUM CHLORIDE
     Dosage: 3 DOSAGE FORMS DAILY;
  5. LASIX [Concomitant]
     Active Substance: FUROSEMIDE
     Dosage: 880 MILLIGRAM DAILY;
  6. INSULIN [Concomitant]
     Active Substance: INSULIN NOS
     Dosage: 30 IU (INTERNATIONAL UNIT) DAILY;
  7. GABAPENTIN. [Suspect]
     Active Substance: GABAPENTIN
     Dosage: 2000 MILLIGRAM DAILY;
     Route: 048
     Dates: start: 2016
  8. PROBIOTICA [Concomitant]
     Active Substance: PROBIOTICS NOS
     Dosage: 1 DAILY
  9. GABAPENTIN. [Suspect]
     Active Substance: GABAPENTIN
     Indication: DIABETIC NEUROPATHY
     Dosage: 300 MILLIGRAM DAILY;
     Route: 048
     Dates: start: 2016

REACTIONS (1)
  - Drug dependence [Recovering/Resolving]
